FAERS Safety Report 6502510 (Version 6)
Quarter: 2024Q3

REPORT INFORMATION
  Report Type: Spontaneous
  Country: JP (occurrence: JP)
  Receive Date: 20071214
  Receipt Date: 20240918
  Transmission Date: 20241017
  Serious: Yes (Life-Threatening, Hospitalization, Other)
  Sender: PFIZER
  Company Number: JP-PFIZER INC-2007103966

PATIENT
  Age: 72 Year
  Sex: Female
  Weight: 48 kg

DRUGS (12)
  1. CLINDAMYCIN PHOSPHATE [Suspect]
     Active Substance: CLINDAMYCIN PHOSPHATE
     Indication: Infection
     Dosage: 0.6 G, 2X/DAY
     Route: 042
     Dates: start: 20071115, end: 20071122
  2. CEFTAZIDIME [Suspect]
     Active Substance: CEFTAZIDIME
     Indication: Infection
     Dosage: 1 G, 2X/DAY
     Route: 042
     Dates: start: 20071115, end: 20071122
  3. CEFTAZIDIME [Suspect]
     Active Substance: CEFTAZIDIME
     Dosage: 0.5 G, 1X/DAY
     Dates: start: 20071122
  4. INOVAN [DOPAMINE HYDROCHLORIDE] [Concomitant]
     Dosage: UNK
     Route: 042
     Dates: start: 20071115, end: 20071122
  5. ALPROSTADIL ALFADEX [Concomitant]
     Active Substance: ALPROSTADIL ALFADEX
     Dosage: 500 UG, DAILY
     Route: 042
     Dates: start: 20071115, end: 20071115
  6. PRECEDEX [Concomitant]
     Active Substance: DEXMEDETOMIDINE HYDROCHLORIDE
     Dosage: 200 UG, DAILY
     Route: 042
     Dates: start: 20071115, end: 20071115
  7. URSO [Concomitant]
     Active Substance: URSODIOL
     Indication: Cholelithiasis
     Dosage: UNK
     Route: 048
     Dates: start: 20071118, end: 20071122
  8. IFENPRODIL [Concomitant]
     Active Substance: IFENPRODIL
     Indication: Cerebral haemorrhage
     Dosage: UNK
     Route: 048
     Dates: start: 20071118, end: 20071122
  9. TEPRENONE [Concomitant]
     Active Substance: TEPRENONE
     Indication: Gastritis
     Dosage: UNK
     Route: 048
     Dates: start: 20071118, end: 20071122
  10. CILNIDIPINE [Concomitant]
     Active Substance: CILNIDIPINE
     Indication: Hypertension
     Dosage: UNK
     Route: 048
     Dates: start: 20071118, end: 20071122
  11. OXYBUTYNIN CHLORIDE [Concomitant]
     Active Substance: OXYBUTYNIN CHLORIDE
     Indication: Pollakiuria
     Dosage: UNK
     Route: 048
     Dates: start: 20071118, end: 20071122
  12. ZOLPIDEM TARTRATE [Concomitant]
     Active Substance: ZOLPIDEM TARTRATE
     Indication: Insomnia
     Dosage: UNK
     Route: 048
     Dates: start: 20071118, end: 20071122

REACTIONS (2)
  - Acute kidney injury [Recovered/Resolved]
  - Acute generalised exanthematous pustulosis [Recovered/Resolved]

NARRATIVE: CASE EVENT DATE: 20071118
